FAERS Safety Report 9509786 (Version 1)
Quarter: 2013Q3

REPORT INFORMATION
  Report Type: Spontaneous
  Country: US (occurrence: US)
  Receive Date: 20130909
  Receipt Date: 20130909
  Transmission Date: 20140515
  Serious: Yes (Other)
  Sender: FDA-Public Use
  Company Number: US-BRISTOL-MYERS SQUIBB COMPANY-18853580

PATIENT
  Age: 62 Year
  Sex: Male

DRUGS (5)
  1. ABILIFY [Suspect]
     Indication: BIPOLAR DISORDER
  2. TRILEPTAL [Suspect]
     Indication: BIPOLAR DISORDER
  3. DURAGESIC PATCH [Concomitant]
     Indication: PAIN
  4. PRISTIQ [Concomitant]
  5. LYRICA [Concomitant]

REACTIONS (1)
  - Diabetes mellitus [Unknown]
